FAERS Safety Report 9505856 (Version 1)
Quarter: 2013Q1

REPORT INFORMATION
  Report Type: Spontaneous
  Country: US (occurrence: None)
  Receive Date: 20130219
  Receipt Date: 20130219
  Transmission Date: 20140127
  Serious: Yes (Life-Threatening)
  Sender: FDA-Public Use
  Company Number: 1207USA009833

PATIENT
  Sex: Male

DRUGS (7)
  1. ZOCOR (SIMVASTATIN) [Suspect]
     Route: 048
  2. METFORMIN (METFORMIN) [Suspect]
     Route: 048
  3. PERINDOPRIL ERBUMINE (PERINDOPRIL ERBUMINE) [Concomitant]
  4. ACETYLSALICYLZUUR CARDIO CF (ASPIRIN) [Concomitant]
  5. ACETAMINOPHEN (ACETAMINOPHEN) [Concomitant]
  6. PERSANTIN RETARD (DIPYRIDAMOLE) [Concomitant]
  7. PENFILL50R (INSULIN, BIPHASIC ISOPHANE [INJECTION]) INJECTION [Concomitant]

REACTIONS (2)
  - Jaundice [None]
  - Nausea [None]
